FAERS Safety Report 9214935 (Version 1)
Quarter: 2013Q2

REPORT INFORMATION
  Report Type: Report from Study
  Country: CA (occurrence: CA)
  Receive Date: 20130405
  Receipt Date: 20130405
  Transmission Date: 20140414
  Serious: Yes (Disabling, Other)
  Sender: FDA-Public Use
  Company Number: CA-AMGEN-CANCT2011063661

PATIENT
  Age: 90 Year
  Sex: Male

DRUGS (11)
  1. DENOSUMAB [Suspect]
     Indication: PROSTATE CANCER
     Dosage: 60 MG, QMO
     Route: 058
     Dates: start: 20070523, end: 20110613
  2. NORVASC [Concomitant]
     Dosage: 5 MG, BID
     Route: 048
     Dates: start: 20091006
  3. METOPROLOL [Concomitant]
     Dosage: 25 MG, BID
     Route: 048
     Dates: start: 20090321
  4. VITAMIN B12 [Concomitant]
     Dosage: UNK UNK, QD
     Route: 048
     Dates: start: 20091201
  5. TYLENOL ARTHRITIS [Concomitant]
     Indication: PAIN
     Dosage: UNK UNK, PRN
     Route: 048
     Dates: start: 20091130
  6. AVAPRO [Concomitant]
     Dosage: 300 MG, QD
     Route: 048
     Dates: start: 20101006
  7. ASA [Concomitant]
     Dosage: QD81 MG, QD
     Route: 048
     Dates: start: 199304
  8. SOFLAX [Concomitant]
     Dosage: 100 MG, QD
     Route: 048
     Dates: start: 2006
  9. LUTEINE [Concomitant]
     Dosage: 6 MG, QD
     Route: 048
     Dates: start: 2002
  10. CALCIUM [Concomitant]
     Dosage: 600 MG, BID
     Route: 048
     Dates: start: 20070524
  11. VITAMIN D [Concomitant]
     Dosage: 200 IU, BID
     Route: 048
     Dates: start: 20070524

REACTIONS (1)
  - Osteonecrosis of jaw [Not Recovered/Not Resolved]
